FAERS Safety Report 10233659 (Version 1)
Quarter: 2014Q2

REPORT INFORMATION
  Report Type: Other
  Country: US (occurrence: US)
  Receive Date: 20140612
  Receipt Date: 20140612
  Transmission Date: 20141212
  Serious: Yes (Hospitalization, Other)
  Sender: FDA-Public Use
  Company Number: US-SPECTRUM PHARMACEUTICALS, INC.-14-Z-US-00096

PATIENT
  Age: 66 Year
  Sex: Female
  Weight: 65.77 kg

DRUGS (8)
  1. ZEVALIN [Suspect]
     Indication: B-CELL LYMPHOMA
     Dosage: 22.5 MCI, SINGLE
     Route: 042
     Dates: start: 20130404, end: 20130404
  2. RITUXIMAB [Suspect]
     Indication: B-CELL LYMPHOMA
     Dosage: 700 MG, DAY 1 X 4 CYCLES
     Route: 042
     Dates: start: 20121025, end: 20130124
  3. RITUXIMAB [Suspect]
     Dosage: 470 MG, SINGLE
     Route: 042
     Dates: start: 20130328, end: 20130328
  4. RITUXIMAB [Suspect]
     Dosage: 470 MG, SINGLE
     Route: 042
     Dates: start: 20130404, end: 20130404
  5. BENDAMUSTINE [Suspect]
     Indication: B-CELL LYMPHOMA
     Dosage: UNK, UNKNOWN
     Route: 065
     Dates: start: 20121025, end: 20130124
  6. HYDROXYCHLOROQUINE [Concomitant]
     Indication: RHEUMATOID ARTHRITIS
     Dosage: 200 MG, QD
     Route: 048
     Dates: start: 20110301, end: 20140516
  7. BACLOFEN [Concomitant]
     Indication: PRODUCT USED FOR UNKNOWN INDICATION
     Dosage: 10 MG, QD
     Route: 048
     Dates: start: 20140430
  8. LORAZEPAM [Concomitant]
     Indication: PRODUCT USED FOR UNKNOWN INDICATION
     Dosage: 0.5 MG, QD
     Route: 048
     Dates: start: 20121107

REACTIONS (1)
  - Progressive multifocal leukoencephalopathy [Not Recovered/Not Resolved]
